FAERS Safety Report 24804351 (Version 1)
Quarter: 2025Q1

REPORT INFORMATION
  Report Type: Spontaneous
  Country: US (occurrence: None)
  Receive Date: 20250102
  Receipt Date: 20250102
  Transmission Date: 20250409
  Serious: Yes (Hospitalization)
  Sender: FDA-CTU
  Company Number: None

PATIENT
  Sex: Male

DRUGS (3)
  1. RECOMBINATE [Suspect]
     Active Substance: ANTIHEMOPHILIC FACTOR, HUMAN RECOMBINANT
     Indication: Factor VIII deficiency
     Dosage: FREQUENCY : EVERY 12 HOURS;?
     Route: 042
     Dates: start: 202308
  2. HEPARIN L/L FLUSH SYRINGE [Concomitant]
  3. SODIUM CHLORIDE [Concomitant]
     Active Substance: SODIUM CHLORIDE

REACTIONS (2)
  - Haemarthrosis [None]
  - Arthritis infective [None]
